FAERS Safety Report 4778341-8 (Version None)
Quarter: 2005Q3

REPORT INFORMATION
  Report Type: 
  Country: None (occurrence: None)
  Receive Date: 20050923
  Receipt Date: 20050923
  Transmission Date: 20060218
  Serious: Yes (Other)
  Sender: FDA-Public Use
  Company Number: None

PATIENT
  Age: 50 Year
  Sex: Female
  Weight: 128.8216 kg

DRUGS (1)
  1. PEFLUTREN                         BRISTOL, MYERS, SQUIBB [Suspect]
     Indication: ECHOCARDIOGRAM
     Dosage: 2ML, X1 IV BOLUS
     Route: 040

REACTIONS (8)
  - CONVULSION [None]
  - DIZZINESS [None]
  - DYSKINESIA [None]
  - DYSPNOEA [None]
  - EYE ROLLING [None]
  - HYPERHIDROSIS [None]
  - NAUSEA [None]
  - URINARY INCONTINENCE [None]
